FAERS Safety Report 5632516-4 (Version None)
Quarter: 2008Q1

REPORT INFORMATION
  Report Type: 
  Country: None (occurrence: None)
  Receive Date: 20080131
  Receipt Date: 20071010
  Transmission Date: 20080703
  Serious: No
  Sender: FDA-Public Use
  Company Number: 163-21880-07100580

PATIENT
  Age: 75 Year
  Sex: Male

DRUGS (13)
  1. REVLIMID [Suspect]
     Indication: MYELODYSPLASTIC SYNDROME
     Dosage: 5 MG, DAILY FOR 3 WEEKS ON AND 1 WEEK OFF, ORAL
     Route: 048
     Dates: start: 20070921
  2. FERROUS SULFATE TAB [Concomitant]
  3. CASODEX (BI9CALUTAMIDE) [Concomitant]
  4. COLAZAL (BALSALAZIDE SODIUM) [Concomitant]
  5. ALBUTEROL [Concomitant]
  6. AMILORIDE (AMILORIDE) [Concomitant]
  7. DIGOXIN [Concomitant]
  8. ATENOLOL [Concomitant]
  9. ALLOPURINOL [Concomitant]
  10. OMEPRAZOLE [Concomitant]
  11. ADVAIR DISKUS 100/50 [Concomitant]
  12. SPIRIVA [Concomitant]
  13. LUPRON [Concomitant]

REACTIONS (2)
  - ABDOMINAL PAIN [None]
  - THROMBOCYTOPENIA [None]
